FAERS Safety Report 14164882 (Version 1)
Quarter: 2017Q4

REPORT INFORMATION
  Report Type: Spontaneous
  Country: TW (occurrence: TW)
  Receive Date: 20171107
  Receipt Date: 20171107
  Transmission Date: 20180321
  Serious: Yes (Hospitalization)
  Sender: FDA-Public Use
  Company Number: PHHY2017TW144968

PATIENT
  Age: 55 Year

DRUGS (1)
  1. GILENYA [Suspect]
     Active Substance: FINGOLIMOD HYDROCHLORIDE
     Indication: MULTIPLE SCLEROSIS
     Dosage: 0.5 MG, QD (ONCE DAILY)
     Route: 048
     Dates: start: 20160829, end: 20170928

REACTIONS (3)
  - Central nervous system infection [Not Recovered/Not Resolved]
  - Somnolence [Not Recovered/Not Resolved]
  - JC virus test positive [Not Recovered/Not Resolved]

NARRATIVE: CASE EVENT DATE: 20170928
